FAERS Safety Report 5132578-7 (Version None)
Quarter: 2006Q4

REPORT INFORMATION
  Report Type: 
  Country: None (occurrence: None)
  Receive Date: 20061020
  Receipt Date: 20061020
  Transmission Date: 20070319
  Serious: Yes (Other)
  Sender: FDA-Public Use
  Company Number: None

PATIENT
  Age: 7 Year
  Sex: Male
  Weight: 74.8435 kg

DRUGS (1)
  1. RITALIN [Suspect]
     Indication: ATTENTION DEFICIT/HYPERACTIVITY DISORDER
     Dosage: 1 TABLET    1 DAILY    BUCCAL
     Route: 002
     Dates: start: 19970103, end: 19971231

REACTIONS (3)
  - GROWTH RETARDATION [None]
  - HYPOTRICHOSIS [None]
  - WEIGHT DECREASED [None]
